FAERS Safety Report 6013156-4 (Version None)
Quarter: 2008Q4

REPORT INFORMATION
  Report Type: 
  Country: None (occurrence: None)
  Receive Date: 20081219
  Receipt Date: 20081124
  Transmission Date: 20090506
  Serious: No
  Sender: FDA-Public Use
  Company Number: US-BAYER-200839437NA

PATIENT
  Sex: Male
  Weight: 82 kg

DRUGS (4)
  1. MAGNEVIST [Suspect]
     Indication: HYPOTHALAMO-PITUITARY DISORDER
     Dosage: TOTAL DAILY DOSE: 16 ML  UNIT DOSE: 100 ML
     Route: 042
     Dates: start: 20081120, end: 20081120
  2. ALLERGY SHOTS [Concomitant]
  3. ASTELIN [Concomitant]
  4. TESTOSTERONE [Concomitant]

REACTIONS (1)
  - PRURITUS [None]
